FAERS Safety Report 8298328-0 (Version None)
Quarter: 2012Q2

REPORT INFORMATION
  Report Type: 
  Country: None (occurrence: None)
  Receive Date: 20120419
  Receipt Date: 20120413
  Transmission Date: 20120825
  Serious: Yes (Other)
  Sender: FDA-Public Use
  Company Number: PHFR2012GB001573

PATIENT
  Age: 75 Year
  Sex: Male

DRUGS (12)
  1. FORMOTEROL FUMARATE [Suspect]
  2. ATORVASTATIN [Suspect]
  3. RAMIPRIL [Suspect]
  4. CYSTEINE [Suspect]
  5. SYMBICORT [Concomitant]
  6. WARFARIN SODIUM [Suspect]
  7. ALBUTEROL [Suspect]
  8. METFORMIN HCL [Suspect]
  9. PREDNISOLONE [Suspect]
  10. VERAPAMIL [Suspect]
  11. SPIRIVA [Concomitant]
  12. FUROSEMIDE [Suspect]

REACTIONS (1)
  - HALLUCINATION [None]
